FAERS Safety Report 9200793 (Version 1)
Quarter: 2013Q1

REPORT INFORMATION
  Report Type: Spontaneous
  Country: GB (occurrence: None)
  Receive Date: 20130327
  Receipt Date: 20130327
  Transmission Date: 20140127
  Serious: Yes (Life-Threatening, Hospitalization)
  Sender: FDA-Public Use
  Company Number: 2013-05078

PATIENT
  Age: 70 Year
  Sex: Male

DRUGS (9)
  1. ASPIRIN [Suspect]
     Indication: MYOCARDIAL ISCHAEMIA
     Route: 048
     Dates: start: 20130307
  2. ASPIRIN [Suspect]
     Indication: MYOCARDIAL ISCHAEMIA
     Route: 048
     Dates: start: 20130307
  3. CITALOPRAM HYDROBROMIDE [Suspect]
     Indication: DEPRESSION
     Route: 048
  4. OMEPRAZOLE (OMEPRAZOLE) [Concomitant]
  5. LACTULOSE (LACTULOSE) [Concomitant]
  6. BENPERIDOL (BENPERIDOL) [Concomitant]
  7. CETIRIZINE (CETIRIZINE) [Concomitant]
  8. PARACETAMOL (PARACETAMOL) [Concomitant]
  9. MULTIVITAMIN?/00097801/ (ASCORBIC ACID, CALCIUM PANTOTHENATE, ERGOCALCIFEROL, NICOTINAMIDE, PYRIDOXINE HYDROCHLORIDE, RETINOL, RIBOFLAVIN, THIAMINE HYDROCHLORIDE) [Concomitant]

REACTIONS (2)
  - Normochromic normocytic anaemia [None]
  - Acute myocardial infarction [None]
